FAERS Safety Report 23478659 (Version 1)
Quarter: 2024Q1

REPORT INFORMATION
  Report Type: Report from Study
  Country: TW (occurrence: TW)
  Receive Date: 20240205
  Receipt Date: 20240205
  Transmission Date: 20240409
  Serious: No
  Sender: FDA-Public Use
  Company Number: TW-IPSEN Group, Research and Development-2023-21217

PATIENT
  Sex: Male
  Weight: 84.3 kg

DRUGS (1)
  1. CABOMETYX [Suspect]
     Active Substance: CABOZANTINIB S-MALATE
     Indication: Renal cell carcinoma
     Dosage: 20 MG, QD
     Route: 048
     Dates: start: 202106

REACTIONS (3)
  - Cardiac electrophysiologic study abnormal [Recovering/Resolving]
  - Faeces soft [Recovering/Resolving]
  - Nocturia [Recovering/Resolving]
